FAERS Safety Report 8401586-2 (Version None)
Quarter: 2012Q2

REPORT INFORMATION
  Report Type: 
  Country: None (occurrence: None)
  Receive Date: 20120601
  Receipt Date: 20120523
  Transmission Date: 20120825
  Serious: Yes (Hospitalization, Other)
  Sender: FDA-Public Use
  Company Number: JP-VERTEX PHARMACEUTICALS INC.-AE-2012-004355

PATIENT
  Age: 64 Year
  Sex: Female

DRUGS (10)
  1. PEGINTERFERON ALFA-2B [Concomitant]
     Indication: HEPATITIS C
     Route: 051
     Dates: start: 20120206, end: 20120212
  2. AMARYL [Concomitant]
     Route: 048
  3. RIBAVIRIN [Concomitant]
     Route: 048
     Dates: start: 20120221, end: 20120227
  4. TELAVIC (TELAPREVIR) [Suspect]
     Indication: HEPATITIS C
     Route: 048
     Dates: start: 20120206, end: 20120227
  5. LOXONIN [Concomitant]
     Route: 048
     Dates: start: 20120206
  6. LEVOTHYROXINE SODIUM [Concomitant]
     Route: 048
  7. ALLEGRA [Concomitant]
     Route: 048
     Dates: start: 20120206
  8. RIBAVIRIN [Concomitant]
     Route: 048
     Dates: start: 20120206, end: 20120220
  9. LANSOPRAZOLE [Concomitant]
     Route: 048
     Dates: start: 20120206
  10. PEGINTERFERON ALFA-2B [Concomitant]
     Route: 051
     Dates: start: 20120213, end: 20120220

REACTIONS (6)
  - PSYCHIATRIC SYMPTOM [None]
  - IRRITABILITY [None]
  - AGGRESSION [None]
  - PLATELET COUNT DECREASED [None]
  - RASH [None]
  - IMPULSIVE BEHAVIOUR [None]
